FAERS Safety Report 10458593 (Version 2)
Quarter: 2014Q4

REPORT INFORMATION
  Report Type: Report from Study
  Country: AR (occurrence: AR)
  Receive Date: 20140917
  Receipt Date: 20141001
  Transmission Date: 20150528
  Serious: Yes (Other)
  Sender: FDA-Public Use
  Company Number: PHHY2014AR119840

PATIENT
  Sex: Female

DRUGS (1)
  1. EXJADE [Suspect]
     Active Substance: DEFERASIROX
     Indication: IRON OVERLOAD

REACTIONS (4)
  - Blood iron increased [Unknown]
  - Transaminases increased [Recovered/Resolved]
  - Metabolic disorder [Unknown]
  - Liver function test abnormal [Unknown]
